FAERS Safety Report 15179809 (Version 1)
Quarter: 2018Q3

REPORT INFORMATION
  Report Type: Spontaneous
  Country: US (occurrence: US)
  Receive Date: 20180723
  Receipt Date: 20180723
  Transmission Date: 20181010
  Serious: Yes (Hospitalization, Other)
  Sender: FDA-Public Use
  Company Number: US-RECORDATI RARE DISEASES INC.-US-R13005-18-00198

PATIENT
  Age: 25 Year
  Sex: Female

DRUGS (1)
  1. METHAMPHETAMINE [Suspect]
     Active Substance: METHAMPHETAMINE
     Indication: PRODUCT USED FOR UNKNOWN INDICATION
     Route: 065

REACTIONS (6)
  - Choreoathetosis [Recovered/Resolved]
  - Constricted affect [Unknown]
  - Dysphoria [Unknown]
  - Anxiety [Unknown]
  - Depressed mood [Unknown]
  - Drug abuse [Unknown]
